FAERS Safety Report 6293845-7 (Version None)
Quarter: 2009Q3

REPORT INFORMATION
  Report Type: 
  Country: None (occurrence: None)
  Receive Date: 20090803
  Receipt Date: 20090721
  Transmission Date: 20100115
  Serious: Yes (Hospitalization, Other)
  Sender: FDA-Public Use
  Company Number: US-ELI_LILLY_AND_COMPANY-US200907004544

PATIENT
  Sex: Female

DRUGS (11)
  1. FORTEO [Suspect]
     Indication: OSTEOPOROSIS
     Dosage: UNK, UNK
     Dates: start: 20070801, end: 20080801
  2. FORTEO [Suspect]
     Dosage: UNK, UNK
     Dates: start: 20090401
  3. LIPITOR [Concomitant]
     Dosage: 20 MG, DAILY (1/D)
  4. LEVOTHYROXINE SODIUM [Concomitant]
     Dosage: 50 UG, UNK
  5. PRILOSEC [Concomitant]
     Dosage: 20 MG, 2/D
  6. ACYCLOVIR [Concomitant]
     Dosage: 400 D/F, DAILY (1/D)
  7. ASCORBIC ACID W/CALCIUM [Concomitant]
     Dosage: 1200 MG, DAILY (1/D)
  8. MULTI-VITAMIN [Concomitant]
     Dosage: UNK, DAILY (1/D)
  9. SOTALOL HCL [Concomitant]
     Dosage: 80 D/F, 2/D
  10. COUMADIN [Concomitant]
     Dosage: UNK, VARIABLE
  11. ARANESP [Concomitant]

REACTIONS (8)
  - ASTHENIA [None]
  - ATRIAL FIBRILLATION [None]
  - BLOOD PRESSURE ABNORMAL [None]
  - COMA [None]
  - FALL [None]
  - MALAISE [None]
  - PELVIC HAEMATOMA [None]
  - PERIORBITAL HAEMATOMA [None]
